FAERS Safety Report 15135734 (Version 3)
Quarter: 2018Q4

REPORT INFORMATION
  Report Type: Report from Study
  Country: None (occurrence: US)
  Receive Date: 20180712
  Receipt Date: 20181024
  Transmission Date: 20190204
  Serious: Yes (Other)
  Sender: FDA-Public Use
  Company Number: US-ABBVIE-17K-163-2082154-00

PATIENT
  Sex: Male

DRUGS (1)
  1. HUMIRA [Suspect]
     Active Substance: ADALIMUMAB
     Indication: RHEUMATOID ARTHRITIS
     Route: 058

REACTIONS (11)
  - Nerve injury [Not Recovered/Not Resolved]
  - Alcohol abuse [Unknown]
  - Back pain [Unknown]
  - Muscle injury [Not Recovered/Not Resolved]
  - Drug abuse [Unknown]
  - Restless legs syndrome [Unknown]
  - Intervertebral disc degeneration [Unknown]
  - Rotator cuff syndrome [Not Recovered/Not Resolved]
  - Stress [Unknown]
  - Musculoskeletal pain [Not Recovered/Not Resolved]
  - Injection site bruising [Not Recovered/Not Resolved]
